FAERS Safety Report 6822818-8 (Version None)
Quarter: 2010Q3

REPORT INFORMATION
  Report Type: 
  Country: None (occurrence: None)
  Receive Date: 20100706
  Receipt Date: 20100706
  Transmission Date: 20110219
  Serious: No
  Sender: FDA-Public Use
  Company Number: None

PATIENT
  Sex: Male
  Weight: 113.3993 kg

DRUGS (1)
  1. DORZOLAMIDE/TIMOLOL 22.3MG/ML/6.8MG/ML HI-TECH PHARMACAL [Suspect]
     Indication: GLAUCOMA
     Dosage: 1 DROP BID OPHTHALMIC
     Route: 047
     Dates: start: 20091019, end: 20100402

REACTIONS (2)
  - EYE IRRITATION [None]
  - OCULAR HYPERAEMIA [None]
